FAERS Safety Report 21709764 (Version 1)
Quarter: 2022Q4

REPORT INFORMATION
  Report Type: Spontaneous
  Country: US (occurrence: US)
  Receive Date: 20221210
  Receipt Date: 20221210
  Transmission Date: 20230113
  Serious: No
  Sender: FDA-Public Use
  Company Number: US-JNJFOC-20221207915

PATIENT

DRUGS (1)
  1. MENS ROGAINE UNSCENTED FORMULA [Suspect]
     Active Substance: MINOXIDIL
     Indication: Product used for unknown indication
     Route: 061

REACTIONS (4)
  - Drug ineffective [Unknown]
  - Product formulation issue [Unknown]
  - Suspected counterfeit product [Unknown]
  - Product container issue [Unknown]
